FAERS Safety Report 6512553-8 (Version None)
Quarter: 2009Q4

REPORT INFORMATION
  Report Type: 
  Country: None (occurrence: None)
  Receive Date: 20091222
  Receipt Date: 20091218
  Transmission Date: 20100525
  Serious: Yes (Other)
  Sender: FDA-Public Use
  Company Number: UG-GILEAD-2009-0026114

PATIENT
  Age: 27 Year
  Sex: Female

DRUGS (2)
  1. VIREAD [Suspect]
     Indication: HIV INFECTION
     Route: 048
     Dates: start: 20031014
  2. COMBIVIR [Concomitant]
     Indication: HIV INFECTION
     Dates: start: 20031014

REACTIONS (1)
  - ABORTION SPONTANEOUS [None]
